FAERS Safety Report 9707300 (Version 1)
Quarter: 2013Q4

REPORT INFORMATION
  Report Type: Spontaneous
  Country: US (occurrence: US)
  Receive Date: 20131125
  Receipt Date: 20131125
  Transmission Date: 20140711
  Serious: No
  Sender: FDA-Public Use
  Company Number: US-GLAXOSMITHKLINE-A1000130A

PATIENT
  Age: 79 Year
  Sex: Male

DRUGS (3)
  1. FLOVENT [Suspect]
     Indication: MULTIPLE ALLERGIES
     Dosage: 1PUFF TWICE PER DAY
     Route: 055
  2. METHOTREXATE [Concomitant]
  3. CELEBREX [Concomitant]

REACTIONS (1)
  - Pruritus generalised [Not Recovered/Not Resolved]
